FAERS Safety Report 23422836 (Version 1)
Quarter: 2024Q1

REPORT INFORMATION
  Report Type: Spontaneous
  Country: US (occurrence: US)
  Receive Date: 20240119
  Receipt Date: 20240119
  Transmission Date: 20240409
  Serious: Yes (Other)
  Sender: FDA-Public Use
  Company Number: US-ORGANON-O2401USA001443

PATIENT
  Age: 86 Year
  Sex: Female

DRUGS (1)
  1. LOSARTAN POTASSIUM [Suspect]
     Active Substance: LOSARTAN POTASSIUM
     Indication: Small intestinal obstruction
     Dosage: UNK

REACTIONS (2)
  - Intestinal angioedema [Recovered/Resolved]
  - Weight decreased [Recovered/Resolved]
